FAERS Safety Report 24908861 (Version 1)
Quarter: 2025Q1

REPORT INFORMATION
  Report Type: Spontaneous
  Country: CA (occurrence: CA)
  Receive Date: 20250131
  Receipt Date: 20250131
  Transmission Date: 20250409
  Serious: Yes (Death, Life-Threatening, Hospitalization, Disabling, Congenital Anomaly, Other)
  Sender: Haleon PLC
  Company Number: CA-002147023-NVSC2021CA120033

PATIENT
  Age: 40 Year
  Sex: Female

DRUGS (114)
  1. DICLOFENAC SODIUM [Suspect]
     Active Substance: DICLOFENAC SODIUM
     Indication: Product used for unknown indication
     Route: 065
  2. FOLIC ACID [Concomitant]
     Active Substance: FOLIC ACID
     Indication: Product used for unknown indication
  3. BUPROPION [Concomitant]
     Active Substance: BUPROPION
     Indication: Product used for unknown indication
  4. PREDNISONE [Concomitant]
     Active Substance: PREDNISONE
     Indication: Product used for unknown indication
  5. ANAKINRA [Concomitant]
     Active Substance: ANAKINRA
     Indication: Product used for unknown indication
  6. ERELZI [Suspect]
     Active Substance: ETANERCEPT-SZZS
     Indication: Rheumatoid arthritis
     Route: 065
  7. ADALIMUMAB [Suspect]
     Active Substance: ADALIMUMAB
     Indication: Rheumatoid arthritis
     Route: 058
  8. HYRIMOZ [Suspect]
     Active Substance: ADALIMUMAB-ADAZ
     Indication: Rheumatoid arthritis
     Route: 065
  9. RITUXIMAB [Suspect]
     Active Substance: RITUXIMAB
     Indication: Rheumatoid arthritis
     Route: 042
  10. RITUXIMAB [Suspect]
     Active Substance: RITUXIMAB
     Route: 042
  11. RITUXIMAB [Suspect]
     Active Substance: RITUXIMAB
     Route: 042
  12. RITUXIMAB [Suspect]
     Active Substance: RITUXIMAB
     Route: 065
  13. RITUXIMAB [Suspect]
     Active Substance: RITUXIMAB
     Route: 042
  14. RITUXIMAB [Suspect]
     Active Substance: RITUXIMAB
     Route: 065
  15. RITUXIMAB [Suspect]
     Active Substance: RITUXIMAB
     Route: 042
  16. RITUXIMAB [Suspect]
     Active Substance: RITUXIMAB
     Route: 042
  17. METHOTREXATE [Suspect]
     Active Substance: METHOTREXATE
     Indication: Rheumatoid arthritis
     Route: 048
  18. METHOTREXATE [Suspect]
     Active Substance: METHOTREXATE
     Route: 065
  19. METHOTREXATE [Suspect]
     Active Substance: METHOTREXATE
     Route: 065
  20. METHOTREXATE [Suspect]
     Active Substance: METHOTREXATE
     Route: 048
  21. METHOTREXATE [Suspect]
     Active Substance: METHOTREXATE
     Route: 065
  22. METHOTREXATE [Suspect]
     Active Substance: METHOTREXATE
     Route: 048
  23. METHOTREXATE [Suspect]
     Active Substance: METHOTREXATE
     Route: 065
  24. METHOTREXATE [Suspect]
     Active Substance: METHOTREXATE
     Route: 048
  25. METHOTREXATE [Suspect]
     Active Substance: METHOTREXATE
     Route: 065
  26. METHOTREXATE [Suspect]
     Active Substance: METHOTREXATE
     Route: 048
  27. METHOTREXATE [Suspect]
     Active Substance: METHOTREXATE
     Route: 065
  28. METHOTREXATE [Suspect]
     Active Substance: METHOTREXATE
     Route: 048
  29. METHOTREXATE [Suspect]
     Active Substance: METHOTREXATE
     Route: 048
  30. LEFLUNOMIDE [Suspect]
     Active Substance: LEFLUNOMIDE
     Indication: Rheumatoid arthritis
     Route: 065
  31. LEFLUNOMIDE [Suspect]
     Active Substance: LEFLUNOMIDE
     Route: 058
  32. NEORAL [Suspect]
     Active Substance: CYCLOSPORINE
     Indication: Rheumatoid arthritis
     Route: 065
  33. RISEDRONATE SODIUM [Suspect]
     Active Substance: RISEDRONATE SODIUM
     Indication: Product used for unknown indication
     Route: 048
  34. ACTEMRA [Suspect]
     Active Substance: TOCILIZUMAB
     Indication: Rheumatoid arthritis
     Route: 065
  35. ACTEMRA [Suspect]
     Active Substance: TOCILIZUMAB
     Route: 065
  36. LEFLUNOMIDE [Suspect]
     Active Substance: LEFLUNOMIDE
     Indication: Product used for unknown indication
     Route: 065
  37. APREMILAST [Suspect]
     Active Substance: APREMILAST
     Indication: Rheumatoid arthritis
     Route: 065
  38. ARAVA [Suspect]
     Active Substance: LEFLUNOMIDE
     Indication: Rheumatoid arthritis
     Route: 065
  39. ARAVA [Suspect]
     Active Substance: LEFLUNOMIDE
     Route: 065
  40. ARAVA [Suspect]
     Active Substance: LEFLUNOMIDE
     Route: 065
  41. ARAVA [Suspect]
     Active Substance: LEFLUNOMIDE
     Route: 048
  42. ARAVA [Suspect]
     Active Substance: LEFLUNOMIDE
     Route: 048
  43. CERTOLIZUMAB PEGOL [Suspect]
     Active Substance: CERTOLIZUMAB PEGOL
     Indication: Rheumatoid arthritis
     Route: 058
  44. CIMZIA [Suspect]
     Active Substance: CERTOLIZUMAB PEGOL
     Indication: Rheumatoid arthritis
     Route: 058
  45. CIMZIA [Suspect]
     Active Substance: CERTOLIZUMAB PEGOL
     Route: 065
  46. ENBREL [Suspect]
     Active Substance: ETANERCEPT
     Indication: Rheumatoid arthritis
     Route: 065
  47. ENBREL [Suspect]
     Active Substance: ETANERCEPT
     Route: 058
  48. ENBREL [Suspect]
     Active Substance: ETANERCEPT
     Route: 058
  49. ENBREL [Suspect]
     Active Substance: ETANERCEPT
     Route: 065
  50. HUMIRA [Suspect]
     Active Substance: ADALIMUMAB
     Indication: Rheumatoid arthritis
     Route: 058
  51. HUMIRA [Suspect]
     Active Substance: ADALIMUMAB
     Route: 065
  52. HUMIRA [Suspect]
     Active Substance: ADALIMUMAB
     Route: 058
  53. HUMIRA [Suspect]
     Active Substance: ADALIMUMAB
     Route: 058
  54. HYDROXYCHLOROQUINE SULFATE [Suspect]
     Active Substance: HYDROXYCHLOROQUINE SULFATE
     Indication: Rheumatoid arthritis
     Route: 065
  55. HYDROXYCHLOROQUINE SULFATE [Suspect]
     Active Substance: HYDROXYCHLOROQUINE SULFATE
     Route: 065
  56. HYDROXYCHLOROQUINE SULFATE [Suspect]
     Active Substance: HYDROXYCHLOROQUINE SULFATE
     Route: 065
  57. HYDROXYCHLOROQUINE SULFATE [Suspect]
     Active Substance: HYDROXYCHLOROQUINE SULFATE
     Route: 048
  58. GOLD SODIUM THIOMALATE [Suspect]
     Active Substance: GOLD SODIUM THIOMALATE
     Indication: Rheumatoid arthritis
     Route: 065
  59. GOLD SODIUM THIOMALATE [Suspect]
     Active Substance: GOLD SODIUM THIOMALATE
     Route: 058
  60. GOLD SODIUM THIOMALATE [Suspect]
     Active Substance: GOLD SODIUM THIOMALATE
     Route: 030
  61. STELARA [Suspect]
     Active Substance: USTEKINUMAB
     Indication: Rheumatoid arthritis
     Route: 058
  62. STELARA [Suspect]
     Active Substance: USTEKINUMAB
     Route: 065
  63. TOCILIZUMAB [Suspect]
     Active Substance: TOCILIZUMAB
     Indication: Rheumatoid arthritis
     Route: 065
  64. TOCILIZUMAB [Suspect]
     Active Substance: TOCILIZUMAB
     Route: 065
  65. TOFACITINIB CITRATE [Suspect]
     Active Substance: TOFACITINIB CITRATE
     Indication: Rheumatoid arthritis
     Route: 048
  66. TOFACITINIB CITRATE [Suspect]
     Active Substance: TOFACITINIB CITRATE
     Route: 065
  67. USTEKINUMAB [Suspect]
     Active Substance: USTEKINUMAB
     Indication: Rheumatoid arthritis
     Route: 065
  68. USTEKINUMAB [Suspect]
     Active Substance: USTEKINUMAB
     Route: 058
  69. SULFASALAZINE [Suspect]
     Active Substance: SULFASALAZINE
     Indication: Rheumatoid arthritis
     Route: 065
  70. SULFASALAZINE [Suspect]
     Active Substance: SULFASALAZINE
     Route: 048
  71. SULFASALAZINE [Suspect]
     Active Substance: SULFASALAZINE
     Route: 065
  72. SULFASALAZINE [Suspect]
     Active Substance: SULFASALAZINE
     Route: 065
  73. XELJANZ [Suspect]
     Active Substance: TOFACITINIB CITRATE
     Indication: Rheumatoid arthritis
     Route: 048
  74. XELJANZ [Suspect]
     Active Substance: TOFACITINIB CITRATE
     Route: 065
  75. XELJANZ [Suspect]
     Active Substance: TOFACITINIB CITRATE
     Route: 065
  76. XELJANZ [Suspect]
     Active Substance: TOFACITINIB CITRATE
     Route: 048
  77. XELJANZ [Suspect]
     Active Substance: TOFACITINIB CITRATE
     Route: 048
  78. XELJANZ [Suspect]
     Active Substance: TOFACITINIB CITRATE
     Route: 065
  79. XELJANZ [Suspect]
     Active Substance: TOFACITINIB CITRATE
     Route: 065
  80. XELJANZ [Suspect]
     Active Substance: TOFACITINIB CITRATE
     Route: 048
  81. XELJANZ [Suspect]
     Active Substance: TOFACITINIB CITRATE
     Route: 048
  82. XELJANZ [Suspect]
     Active Substance: TOFACITINIB CITRATE
     Route: 048
  83. DOXYCYCLINE HYCLATE [Suspect]
     Active Substance: DOXYCYCLINE HYCLATE
     Indication: Product used for unknown indication
     Route: 065
  84. HYDROXYCHLOROQUINE [Suspect]
     Active Substance: HYDROXYCHLOROQUINE
     Indication: Rheumatoid arthritis
     Route: 048
  85. OTEZLA [Suspect]
     Active Substance: APREMILAST
     Indication: Product used for unknown indication
     Route: 065
  86. OTEZLA [Suspect]
     Active Substance: APREMILAST
     Route: 048
  87. TETRACYCLINE HYDROCHLORIDE [Suspect]
     Active Substance: TETRACYCLINE HYDROCHLORIDE
     Indication: Rheumatoid arthritis
     Route: 065
  88. TETRACYCLINE HYDROCHLORIDE [Suspect]
     Active Substance: TETRACYCLINE HYDROCHLORIDE
     Route: 065
  89. WELLBUTRIN [Concomitant]
     Active Substance: BUPROPION HYDROCHLORIDE
     Indication: Product used for unknown indication
  90. ORENCIA [Concomitant]
     Active Substance: ABATACEPT
     Indication: Product used for unknown indication
  91. MINOCIN [Suspect]
     Active Substance: MINOCYCLINE HYDROCHLORIDE
     Indication: Rheumatoid arthritis
     Route: 065
  92. MINOCYCLINE HYDROCHLORIDE [Suspect]
     Active Substance: MINOCYCLINE HYDROCHLORIDE
     Indication: Rheumatoid arthritis
     Route: 065
  93. MINOCYCLINE HYDROCHLORIDE [Suspect]
     Active Substance: MINOCYCLINE HYDROCHLORIDE
     Route: 065
  94. MINOCYCLINE HYDROCHLORIDE [Suspect]
     Active Substance: MINOCYCLINE HYDROCHLORIDE
     Route: 065
  95. MYOCHRYSINE [Suspect]
     Active Substance: GOLD SODIUM THIOMALATE
     Indication: Rheumatoid arthritis
     Route: 058
  96. MYOCHRYSINE [Suspect]
     Active Substance: GOLD SODIUM THIOMALATE
     Route: 030
  97. MYOCHRYSINE [Suspect]
     Active Substance: GOLD SODIUM THIOMALATE
     Route: 065
  98. MYOCHRYSINE [Suspect]
     Active Substance: GOLD SODIUM THIOMALATE
     Route: 030
  99. CHLOROQUINE [Suspect]
     Active Substance: CHLOROQUINE
     Indication: Rheumatoid arthritis
     Route: 065
  100. ORENCIA [Suspect]
     Active Substance: ABATACEPT
     Indication: Rheumatoid arthritis
     Route: 065
  101. ORENCIA [Suspect]
     Active Substance: ABATACEPT
     Route: 058
  102. ORENCIA [Suspect]
     Active Substance: ABATACEPT
     Route: 065
  103. ORENCIA [Suspect]
     Active Substance: ABATACEPT
     Route: 042
  104. OTEZLA [Suspect]
     Active Substance: APREMILAST
     Indication: Rheumatoid arthritis
     Route: 048
  105. OTEZLA [Suspect]
     Active Substance: APREMILAST
     Route: 065
  106. SULFASALAZINE [Suspect]
     Active Substance: SULFASALAZINE
     Indication: Rheumatoid arthritis
     Route: 065
  107. SULFASALAZINE [Suspect]
     Active Substance: SULFASALAZINE
     Route: 065
  108. SIMPONI [Suspect]
     Active Substance: GOLIMUMAB
     Indication: Rheumatoid arthritis
     Route: 058
  109. SIMPONI [Suspect]
     Active Substance: GOLIMUMAB
     Route: 058
  110. SIMPONI [Suspect]
     Active Substance: GOLIMUMAB
     Route: 065
  111. SIRUKUMAB [Suspect]
     Active Substance: SIRUKUMAB
     Indication: Rheumatoid arthritis
     Route: 065
  112. SIRUKUMAB [Suspect]
     Active Substance: SIRUKUMAB
     Route: 065
  113. REMICADE [Suspect]
     Active Substance: INFLIXIMAB
     Indication: Rheumatoid arthritis
     Route: 042
  114. REMICADE [Suspect]
     Active Substance: INFLIXIMAB
     Route: 042

REACTIONS (87)
  - Rheumatoid arthritis [Fatal]
  - Coeliac disease [Fatal]
  - Rheumatic fever [Fatal]
  - Hand deformity [Fatal]
  - Product use issue [Fatal]
  - Hypersensitivity [Fatal]
  - Intentional product use issue [Fatal]
  - Alopecia [Fatal]
  - Red blood cell sedimentation rate abnormal [Fatal]
  - Gastrointestinal disorder [Fatal]
  - Joint swelling [Fatal]
  - Sleep disorder [Fatal]
  - Contraindicated product administered [Fatal]
  - Pneumonia [Fatal]
  - Blister [Fatal]
  - Psoriatic arthropathy [Fatal]
  - Drug ineffective [Fatal]
  - Foetal exposure during pregnancy [Fatal]
  - Pruritus [Fatal]
  - Finger deformity [Fatal]
  - Insomnia [Fatal]
  - Treatment failure [Fatal]
  - Overdose [Fatal]
  - Nail disorder [Fatal]
  - Abdominal discomfort [Fatal]
  - Hypertension [Fatal]
  - Drug hypersensitivity [Fatal]
  - Pericarditis [Fatal]
  - Wound [Fatal]
  - Swelling [Fatal]
  - Folliculitis [Fatal]
  - Anti-cyclic citrullinated peptide antibody positive [Fatal]
  - Therapeutic product effect incomplete [Fatal]
  - Contusion [Fatal]
  - Synovitis [Fatal]
  - Abdominal distension [Fatal]
  - Back injury [Fatal]
  - Malaise [Fatal]
  - Impaired healing [Fatal]
  - Onychomadesis [Fatal]
  - Type 2 diabetes mellitus [Fatal]
  - Confusional state [Fatal]
  - Dyspnoea [Fatal]
  - Dyspepsia [Fatal]
  - Arthralgia [Fatal]
  - Gait inability [Fatal]
  - Helicobacter infection [Fatal]
  - Inflammation [Fatal]
  - Blood cholesterol increased [Fatal]
  - Musculoskeletal stiffness [Fatal]
  - Muscular weakness [Fatal]
  - Ill-defined disorder [Fatal]
  - Hepatitis [Fatal]
  - Product use in unapproved indication [Fatal]
  - Stomatitis [Fatal]
  - Pemphigus [Fatal]
  - Duodenal ulcer perforation [Fatal]
  - C-reactive protein abnormal [Fatal]
  - Condition aggravated [Fatal]
  - Drug intolerance [Fatal]
  - Glossodynia [Fatal]
  - Hepatic enzyme increased [Fatal]
  - Neck pain [Fatal]
  - Rheumatoid factor positive [Fatal]
  - Pain in extremity [Fatal]
  - Infusion related reaction [Fatal]
  - C-reactive protein increased [Fatal]
  - General physical health deterioration [Fatal]
  - Pain [Fatal]
  - Rash [Fatal]
  - Injection site reaction [Fatal]
  - Vomiting [Fatal]
  - Arthropathy [Fatal]
  - Systemic lupus erythematosus [Fatal]
  - Mobility decreased [Fatal]
  - Off label use [Fatal]
  - Onychomycosis [Fatal]
  - Fatigue [Fatal]
  - Grip strength decreased [Fatal]
  - Lower respiratory tract infection [Fatal]
  - Injury [Fatal]
  - Fall [Fatal]
  - Product label confusion [Fatal]
  - Headache [Fatal]
  - Nausea [Fatal]
  - Drug-induced liver injury [Fatal]
  - Liver function test increased [Fatal]
